FAERS Safety Report 9940851 (Version 1)
Quarter: 2014Q1

REPORT INFORMATION
  Report Type: Report from Study
  Country: NZ (occurrence: NZ)
  Receive Date: 20140303
  Receipt Date: 20140303
  Transmission Date: 20141002
  Serious: Yes (Hospitalization)
  Sender: FDA-Public Use
  Company Number: PHHY2014NZ024571

PATIENT
  Sex: Male

DRUGS (1)
  1. CLOZARIL [Suspect]

REACTIONS (2)
  - Psychotic disorder [Unknown]
  - Weight decreased [Unknown]
